FAERS Safety Report 6039041-X (Version None)
Quarter: 2009Q1

REPORT INFORMATION
  Report Type: 
  Country: None (occurrence: None)
  Receive Date: 20090115
  Receipt Date: 20090112
  Transmission Date: 20090719
  Serious: Yes (Death, Other)
  Sender: FDA-Public Use
  Company Number: US-ABBOTT-05P-163-0313291-00

PATIENT
  Sex: Male

DRUGS (6)
  1. HUMIRA [Suspect]
     Indication: RHEUMATOID ARTHRITIS
     Route: 058
     Dates: start: 20030508, end: 20050301
  2. HUMIRA [Suspect]
     Indication: PSORIATIC ARTHROPATHY
  3. LASIX [Concomitant]
     Indication: DRUG USE FOR UNKNOWN INDICATION
  4. FELDENE [Concomitant]
     Indication: DRUG USE FOR UNKNOWN INDICATION
  5. LANTUS [Concomitant]
     Indication: DRUG USE FOR UNKNOWN INDICATION
  6. ASPIRIN [Concomitant]
     Indication: DRUG USE FOR UNKNOWN INDICATION

REACTIONS (1)
  - LYMPHOMA [None]
